FAERS Safety Report 9405071 (Version 1)
Quarter: 2013Q3

REPORT INFORMATION
  Report Type: Spontaneous
  Country: CA (occurrence: None)
  Receive Date: 20130708
  Receipt Date: 20130708
  Transmission Date: 20140515
  Serious: Yes (Other)
  Sender: FDA-Public Use
  Company Number: AECAN201300224

PATIENT
  Age: 86 Year
  Sex: Female
  Weight: 75 kg

DRUGS (1)
  1. IGIVNEX [Suspect]
     Indication: MYASTHENIA GRAVIS
     Route: 042
     Dates: start: 20130529, end: 20130529

REACTIONS (4)
  - Dyspnoea [None]
  - Pyrexia [None]
  - Chills [None]
  - Pain in extremity [None]
